FAERS Safety Report 9551315 (Version 1)
Quarter: 2013Q3

REPORT INFORMATION
  Report Type: Spontaneous
  Country: US (occurrence: None)
  Receive Date: 20130923
  Receipt Date: 20130923
  Transmission Date: 20140515
  Serious: Yes (Other)
  Sender: FDA-Public Use
  Company Number: None

PATIENT
  Age: 26 Year
  Sex: Female
  Weight: 82.1 kg

DRUGS (1)
  1. VENLAFAXINE HCL [Suspect]

REACTIONS (3)
  - Abdominal pain [None]
  - Nausea [None]
  - Vomiting [None]
